FAERS Safety Report 5794227-4 (Version None)
Quarter: 2008Q2

REPORT INFORMATION
  Report Type: 
  Country: None (occurrence: None)
  Receive Date: 20080627
  Receipt Date: 20080617
  Transmission Date: 20081010
  Serious: Yes (Hospitalization)
  Sender: FDA-Public Use
  Company Number: JP-PFIZER INC-2008051627

PATIENT
  Age: 59 Year
  Sex: Female

DRUGS (5)
  1. FARMORUBICIN [Suspect]
     Indication: BREAST CANCER
     Dosage: DAILY DOSE:150MG
     Route: 042
  2. ENDOXAN [Concomitant]
     Indication: BREAST CANCER
     Dosage: DAILY DOSE:750MG
     Route: 042
  3. FLUOROURACIL [Concomitant]
     Indication: BREAST CANCER
     Dosage: DAILY DOSE:750MG
     Route: 042
  4. SEROTONE [Concomitant]
     Route: 042
  5. DECADRON [Concomitant]
     Route: 042

REACTIONS (1)
  - RHABDOMYOLYSIS [None]
